FAERS Safety Report 12244710 (Version 1)
Quarter: 2016Q2

REPORT INFORMATION
  Report Type: Spontaneous
  Country: US (occurrence: US)
  Receive Date: 20160407
  Receipt Date: 20160407
  Transmission Date: 20160815
  Serious: No
  Sender: FDA-Public Use
  Company Number: US-HOSPIRA-2932077

PATIENT
  Age: 38 Year
  Sex: Male
  Weight: 87.8 kg

DRUGS (1)
  1. CIPROFLOXACIN. [Suspect]
     Active Substance: CIPROFLOXACIN
     Indication: COLITIS
     Route: 041
     Dates: start: 20150630, end: 20150702

REACTIONS (5)
  - Product container issue [Recovered/Resolved]
  - Product colour issue [Recovered/Resolved]
  - Poor quality drug administered [Recovered/Resolved]
  - Nausea [Unknown]
  - Vomiting [None]

NARRATIVE: CASE EVENT DATE: 20150701
